FAERS Safety Report 7473921-3 (Version None)
Quarter: 2011Q2

REPORT INFORMATION
  Report Type: 
  Country: None (occurrence: None)
  Receive Date: 20110511
  Receipt Date: 20110503
  Transmission Date: 20111010
  Serious: Yes (Other)
  Sender: FDA-Public Use
  Company Number: US-ASTRAZENECA-2011SE12745

PATIENT
  Age: 23 Year
  Sex: Male

DRUGS (4)
  1. NEURONTIN [Concomitant]
  2. SEROQUEL [Suspect]
     Indication: BIPOLAR DISORDER
     Route: 048
  3. SEROQUEL [Suspect]
     Route: 048
  4. FISH OIL [Concomitant]

REACTIONS (17)
  - DEPRESSED MOOD [None]
  - SWOLLEN TONGUE [None]
  - IRRITABILITY [None]
  - INSOMNIA [None]
  - MUSCLE TWITCHING [None]
  - AMNESIA [None]
  - LARYNGOSPASM [None]
  - ANXIETY [None]
  - FEELINGS OF WORTHLESSNESS [None]
  - DYSTONIA [None]
  - FEELING GUILTY [None]
  - TACHYPHRENIA [None]
  - OVERDOSE [None]
  - CONVULSION [None]
  - PAIN IN JAW [None]
  - MOOD SWINGS [None]
  - TEARFULNESS [None]
